FAERS Safety Report 7837204-1 (Version None)
Quarter: 2011Q4

REPORT INFORMATION
  Report Type: 
  Country: None (occurrence: None)
  Receive Date: 20111024
  Receipt Date: 20111020
  Transmission Date: 20120403
  Serious: Yes (Death, Hospitalization)
  Sender: FDA-Public Use
  Company Number: US-B.I. PHARMACEUTICALS,INC./RIDGEFIELD-2011-BP-24744BP

PATIENT
  Age: 52 Year
  Sex: Male

DRUGS (1)
  1. PRADAXA [Suspect]
     Route: 048
     Dates: end: 20111001

REACTIONS (4)
  - INFLUENZA [None]
  - HAEMORRHAGE INTRACRANIAL [None]
  - INTRACRANIAL ANEURYSM [None]
  - VIRAL TEST POSITIVE [None]
